FAERS Safety Report 17852120 (Version 2)
Quarter: 2020Q2

REPORT INFORMATION
  Report Type: Spontaneous
  Country: IT (occurrence: IT)
  Receive Date: 20200602
  Receipt Date: 20200623
  Transmission Date: 20200714
  Serious: Yes (Hospitalization, Other)
  Sender: FDA-Public Use
  Company Number: NVSC2020IT082405

PATIENT
  Age: 44 Year
  Sex: Female
  Weight: 70 kg

DRUGS (12)
  1. TRAMADOL. [Suspect]
     Active Substance: TRAMADOL
     Indication: PAIN
     Dosage: 30 MG (PATIENT CONTROLLED EPIDURAL ANAESTHESIA)
     Route: 048
  2. SUFENTANIL [Suspect]
     Active Substance: SUFENTANIL
     Indication: EPIDURAL ANAESTHESIA
     Dosage: 0.5 MCG/ML (4ML/H) (PATIENT CONTROLLED EPIDURAL ANAESTHESIA)
     Route: 065
  3. DALTEPARIN SODIUM [Suspect]
     Active Substance: DALTEPARIN SODIUM
     Indication: ANTICOAGULANT THERAPY
     Dosage: 2500 IU, QD
     Route: 065
  4. CHIROCAINE [Suspect]
     Active Substance: LEVOBUPIVACAINE HYDROCHLORIDE
     Dosage: .15 %
     Route: 065
  5. KETOROLAC [Suspect]
     Active Substance: KETOROLAC TROMETHAMINE
     Indication: EPIDURAL ANAESTHESIA
     Dosage: 30 MG, QD (PATIENT CONTROLLED EPIDURAL ANAESTHESIA)
     Route: 042
  6. KETOROLAC [Suspect]
     Active Substance: KETOROLAC TROMETHAMINE
     Indication: PAIN MANAGEMENT
  7. SUFENTANIL [Suspect]
     Active Substance: SUFENTANIL
     Indication: PAIN MANAGEMENT
  8. KETOROLAC [Suspect]
     Active Substance: KETOROLAC TROMETHAMINE
     Indication: PAIN
  9. ACETAMINOPHEN. [Suspect]
     Active Substance: ACETAMINOPHEN
     Indication: PAIN MANAGEMENT
     Dosage: 1000 MG, TID
     Route: 065
  10. CHIROCAINE [Suspect]
     Active Substance: LEVOBUPIVACAINE HYDROCHLORIDE
     Indication: EPIDURAL ANAESTHESIA
     Dosage: 15 PERCENT, UNK
     Route: 065
  11. SUFENTANIL [Suspect]
     Active Substance: SUFENTANIL
     Indication: PAIN
  12. CHIROCAINE [Suspect]
     Active Substance: LEVOBUPIVACAINE HYDROCHLORIDE
     Indication: PAIN MANAGEMENT
     Dosage: PATIENT CONTROLLED EPIDURAL ANAESTHESIA
     Route: 065

REACTIONS (8)
  - Spinal column injury [Not Recovered/Not Resolved]
  - Bladder disorder [Recovering/Resolving]
  - Spinal epidural haematoma [Recovered/Resolved with Sequelae]
  - Motor dysfunction [Recovering/Resolving]
  - Premature delivery [Unknown]
  - Maternal exposure during pregnancy [Unknown]
  - Ischaemia [Not Recovered/Not Resolved]
  - Urinary retention [Recovering/Resolving]
